FAERS Safety Report 9669284 (Version 3)
Quarter: 2013Q4

REPORT INFORMATION
  Report Type: Spontaneous
  Country: US (occurrence: US)
  Receive Date: 20131105
  Receipt Date: 20131202
  Transmission Date: 20140711
  Serious: No
  Sender: FDA-Public Use
  Company Number: US-PFIZER INC-2013313522

PATIENT
  Age: 67 Year
  Sex: Female
  Weight: 54 kg

DRUGS (13)
  1. XELJANZ [Suspect]
     Indication: RHEUMATOID ARTHRITIS
     Dosage: 5 MG, 2X/DAY
     Route: 048
     Dates: start: 20131028, end: 20131115
  2. SINEMET [Concomitant]
     Indication: PARKINSON^S DISEASE
     Dosage: 25/100 MG, 3X/DAY
     Route: 048
  3. CLONAZEPAM [Concomitant]
     Dosage: 2 MG, UNK
  4. LOVASTATIN [Concomitant]
     Dosage: 40 MG, 1X/DAY
  5. ADVAIR DISKUS [Concomitant]
     Dosage: 250/50 ?G
  6. FUROSEMIDE [Concomitant]
     Dosage: 20 MG, UNK
  7. METFORMIN [Concomitant]
     Dosage: 500 MG, 1X/DAY
     Route: 048
  8. REQUIP [Concomitant]
     Dosage: 1 MG(0.5MG TWO TABLETS), 3X/DAY
     Route: 048
  9. PERCODAN [Concomitant]
     Indication: PAIN
     Dosage: UNK, AS NEEDED
  10. ACIPHEX [Concomitant]
     Indication: PAIN
     Dosage: UNK
  11. ROBITUSSIN MAXIMUM STRENGTH COUGH AND CHEST CONGESTION DM [Concomitant]
     Dosage: UNK
  12. SOOTHE + COOL SKIN PASTE [Concomitant]
     Dosage: UNK
     Route: 061
  13. LEVOTHYROXINE [Concomitant]
     Indication: HYPOTHYROIDISM
     Dosage: 137 UG, 1X/DAY

REACTIONS (8)
  - Skin disorder [Not Recovered/Not Resolved]
  - Pruritus [Not Recovered/Not Resolved]
  - Blister [Not Recovered/Not Resolved]
  - Burning sensation [Not Recovered/Not Resolved]
  - Musculoskeletal discomfort [Not Recovered/Not Resolved]
  - Malaise [Not Recovered/Not Resolved]
  - Feeling abnormal [Not Recovered/Not Resolved]
  - Neuropathy peripheral [Not Recovered/Not Resolved]
